FAERS Safety Report 9563594 (Version 1)
Quarter: 2013Q3

REPORT INFORMATION
  Report Type: Spontaneous
  Country: DE (occurrence: None)
  Receive Date: 20130926
  Receipt Date: 20130926
  Transmission Date: 20140515
  Serious: Yes (Other)
  Sender: FDA-Public Use
  Company Number: SYM-2013-10961

PATIENT
  Age: 73 Year
  Sex: Female

DRUGS (3)
  1. NITOMAN [Suspect]
     Indication: DYSKINESIA
     Dosage: 25 MG, 3 IN 1 D, ORAL
     Route: 048
     Dates: start: 200905, end: 20121113
  2. AKINETON RETARD (BIPERIDEN) [Concomitant]
  3. CLOZAPINE (CLOZAPINE) [Concomitant]

REACTIONS (2)
  - Drug effect decreased [None]
  - Depression [None]
